FAERS Safety Report 12079967 (Version 1)
Quarter: 2016Q1

REPORT INFORMATION
  Report Type: Spontaneous
  Country: VE (occurrence: VE)
  Receive Date: 20160216
  Receipt Date: 20160216
  Transmission Date: 20160526
  Serious: Yes (Other)
  Sender: FDA-Public Use
  Company Number: PHHY2016VE017090

PATIENT
  Sex: Female

DRUGS (2)
  1. FORADIL [Suspect]
     Active Substance: FORMOTEROL FUMARATE
     Indication: ASTHMA
     Dosage: 12 UG, QD
     Route: 055
     Dates: start: 20100707, end: 201511
  2. BERODUAL [Concomitant]
     Active Substance: FENOTEROL HYDROBROMIDE\IPRATROPIUM BROMIDE
     Indication: ASTHMA
     Dosage: 1 DF, UNK
     Route: 065

REACTIONS (3)
  - Pneumonia [Unknown]
  - Asthmatic crisis [Unknown]
  - Smoke sensitivity [Unknown]
